FAERS Safety Report 25727662 (Version 2)
Quarter: 2025Q3

REPORT INFORMATION
  Report Type: Spontaneous
  Country: US (occurrence: US)
  Receive Date: 20250826
  Receipt Date: 20250925
  Transmission Date: 20251021
  Serious: No
  Sender: UNITED THERAPEUTICS
  Company Number: US-UNITED THERAPEUTICS-UNT-2025-028404

PATIENT
  Age: 71 Year
  Sex: Female

DRUGS (2)
  1. TYVASO [Suspect]
     Active Substance: TREPROSTINIL
     Indication: Pulmonary arterial hypertension
     Dosage: 72 ?G, QID
  2. TYVASO [Suspect]
     Active Substance: TREPROSTINIL
     Indication: Interstitial lung disease

REACTIONS (12)
  - Condition aggravated [Not Recovered/Not Resolved]
  - Dyspnoea [Unknown]
  - Device connection issue [Unknown]
  - Device leakage [Unknown]
  - Device issue [Unknown]
  - Device dislocation [Unknown]
  - Device leakage [Unknown]
  - Device dislocation [Unknown]
  - Product design confusion [Recovered/Resolved]
  - Device connection issue [Unknown]
  - Device dislocation [Unknown]
  - Device connection issue [Unknown]

NARRATIVE: CASE EVENT DATE: 20241201
